FAERS Safety Report 24569432 (Version 1)
Quarter: 2024Q4

REPORT INFORMATION
  Report Type: Spontaneous
  Country: US (occurrence: None)
  Receive Date: 20241030
  Receipt Date: 20241030
  Transmission Date: 20250115
  Serious: Yes (Life-Threatening)
  Sender: Public
  Company Number: None

PATIENT
  Age: 59 Year
  Sex: Male
  Weight: 95.25 kg

DRUGS (6)
  1. PROPRANOLOL [Suspect]
     Active Substance: PROPRANOLOL HYDROCHLORIDE
     Indication: Hypertension
     Dosage: FREQUENCY : DAILY;?
     Route: 048
     Dates: start: 20240918, end: 20240924
  2. acid reflux drug [Concomitant]
  3. OMEPRAZOLE [Concomitant]
     Active Substance: OMEPRAZOLE
  4. ALLEGRA ALLERGY [Concomitant]
     Active Substance: FEXOFENADINE HYDROCHLORIDE
  5. fexfenadine hci [Concomitant]
  6. ANTIHISTAMINES NOS [Concomitant]
     Active Substance: ANTIHISTAMINES NOS

REACTIONS (8)
  - Pollakiuria [None]
  - Contusion [None]
  - Arthralgia [None]
  - Pruritus [None]
  - Crying [None]
  - Depressed mood [None]
  - Anger [None]
  - Anger [None]

NARRATIVE: CASE EVENT DATE: 20240920
